FAERS Safety Report 17054138 (Version 1)
Quarter: 2019Q4

REPORT INFORMATION
  Report Type: Spontaneous
  Country: CZ (occurrence: CZ)
  Receive Date: 20191120
  Receipt Date: 20191120
  Transmission Date: 20200122
  Serious: Yes (Other)
  Sender: FDA-Public Use
  Company Number: CZ-MYLANLABS-2019M1110974

PATIENT
  Age: 62 Year
  Sex: Male
  Weight: 81 kg

DRUGS (2)
  1. ERDOMED [Concomitant]
     Active Substance: ERDOSTEINE
     Dosage: 1-1-0
     Route: 048
  2. KLACID 500 [Suspect]
     Active Substance: CLARITHROMYCIN
     Indication: BRONCHITIS
     Dosage: 1-0-1
     Route: 048
     Dates: start: 20190603, end: 20190604

REACTIONS (4)
  - Hypoaesthesia [Not Recovered/Not Resolved]
  - Retching [Not Recovered/Not Resolved]
  - Dysgeusia [Not Recovered/Not Resolved]
  - Gastrooesophageal reflux disease [Not Recovered/Not Resolved]

NARRATIVE: CASE EVENT DATE: 20190603
